FAERS Safety Report 5060972-1 (Version None)
Quarter: 2006Q3

REPORT INFORMATION
  Report Type: 
  Country: None (occurrence: None)
  Receive Date: 20060720
  Receipt Date: 20060706
  Transmission Date: 20061208
  Serious: Yes (Life-Threatening, Other)
  Sender: FDA-Public Use
  Company Number: 226599

PATIENT
  Age: 51 Year
  Sex: Female

DRUGS (8)
  1. RITUXAN [Suspect]
     Indication: SYSTEMIC LUPUS ERYTHEMATOSUS
     Dosage: 1000 MG, INTRAVENOUS
     Route: 042
     Dates: start: 20060612
  2. CELLCEPT [Concomitant]
  3. PREDNISONE TAB [Concomitant]
  4. DECADRON [Concomitant]
  5. ACETAMINOPHEN [Concomitant]
  6. BENADRYL [Concomitant]
  7. LISINOPRIL [Concomitant]
  8. TRILEPTAL [Concomitant]

REACTIONS (8)
  - CONDITION AGGRAVATED [None]
  - FLUSHING [None]
  - INFUSION RELATED REACTION [None]
  - PARTIAL SEIZURES [None]
  - RASH [None]
  - RASH PRURITIC [None]
  - SWOLLEN TONGUE [None]
  - URTICARIA [None]
